FAERS Safety Report 4989734-8 (Version None)
Quarter: 2006Q2

REPORT INFORMATION
  Report Type: 
  Country: None (occurrence: None)
  Receive Date: 20060501
  Receipt Date: 20060411
  Transmission Date: 20061013
  Serious: Yes (Hospitalization)
  Sender: FDA-Public Use
  Company Number: HP200600060

PATIENT
  Age: 25 Year
  Sex: Male
  Weight: 81.6 kg

DRUGS (2)
  1. PANAFI (PAPAIN, UREA, CHLOROPHYLLIN SODIUM COPPER COMPLEX) OINTMENT [Suspect]
     Indication: LIMB CRUSHING INJURY
     Dosage: UNK, SINGLE, TOPICAL
     Route: 061
     Dates: start: 20050801, end: 20050801
  2. PAIN MEDICINE [Concomitant]

REACTIONS (4)
  - BLISTER [None]
  - DYSPHAGIA [None]
  - FLUSHING [None]
  - PRURITUS [None]
